FAERS Safety Report 13477133 (Version 2)
Quarter: 2017Q3

REPORT INFORMATION
  Report Type: Spontaneous
  Country: US (occurrence: US)
  Receive Date: 20170425
  Receipt Date: 20170919
  Transmission Date: 20171127
  Serious: Yes (Other)
  Sender: FDA-Public Use
  Company Number: US-TEVA-762452USA

PATIENT
  Sex: Male
  Weight: 127 kg

DRUGS (3)
  1. SYNRIBO [Suspect]
     Active Substance: OMACETAXINE MEPESUCCINATE
     Dates: end: 20170913
  2. SYNRIBO [Suspect]
     Active Substance: OMACETAXINE MEPESUCCINATE
     Indication: CHRONIC MYELOID LEUKAEMIA
     Dates: start: 20170323, end: 20170406
  3. SYNRIBO [Suspect]
     Active Substance: OMACETAXINE MEPESUCCINATE
     Dosage: 5 MILLIGRAM DAILY;
     Dates: start: 20170811

REACTIONS (3)
  - Platelet count decreased [Unknown]
  - White blood cell count decreased [Unknown]
  - Granulocytopenia [Unknown]

NARRATIVE: CASE EVENT DATE: 2017
